FAERS Safety Report 12192710 (Version 1)
Quarter: 2016Q1

REPORT INFORMATION
  Report Type: Spontaneous
  Country: BR (occurrence: BR)
  Receive Date: 20160318
  Receipt Date: 20160318
  Transmission Date: 20160526
  Serious: Yes (Other)
  Sender: FDA-Public Use
  Company Number: BR-BAYER-2016-048233

PATIENT
  Sex: Female
  Weight: 60 kg

DRUGS (1)
  1. ASPIRINA [Suspect]
     Active Substance: ASPIRIN
     Route: 048

REACTIONS (2)
  - Blindness transient [None]
  - Drug hypersensitivity [None]
